FAERS Safety Report 7443615-9 (Version None)
Quarter: 2011Q2

REPORT INFORMATION
  Report Type: 
  Country: None (occurrence: None)
  Receive Date: 20110428
  Receipt Date: 20110426
  Transmission Date: 20111010
  Serious: Yes (Death, Life-Threatening, Hospitalization, Other)
  Sender: FDA-Public Use
  Company Number: PHHY2010JP26875

PATIENT
  Sex: Female
  Weight: 53 kg

DRUGS (17)
  1. GLEEVEC [Interacting]
     Dosage: 300 MG, UNK
     Route: 048
     Dates: start: 20100419, end: 20100425
  2. DEPAKENE [Concomitant]
     Indication: SCHIZOPHRENIA
     Dosage: 300 MG DAILY
     Route: 048
     Dates: start: 20100201
  3. GLEEVEC [Suspect]
     Indication: ACUTE LYMPHOCYTIC LEUKAEMIA
     Dosage: 600 MG, UNK
     Route: 048
     Dates: start: 20091119, end: 20091222
  4. ROHYPNOL [Concomitant]
     Dosage: 1 MG, UNK
     Route: 048
     Dates: start: 20100308, end: 20100922
  5. GLEEVEC [Interacting]
     Dosage: 100 MG, UNK
     Route: 048
     Dates: start: 20100208, end: 20100304
  6. GOSHAJINKIGAN [Concomitant]
     Indication: NEURALGIA
     Dosage: 7.5 G, UNK
     Route: 048
     Dates: start: 20100308, end: 20100922
  7. GLEEVEC [Interacting]
     Dosage: 100 MG DAILY
     Route: 048
     Dates: start: 20100509, end: 20100530
  8. GLEEVEC [Interacting]
     Dosage: 400 MG, DAILY
     Route: 048
     Dates: start: 20100726, end: 20100922
  9. RISPERDAL [Interacting]
     Indication: SCHIZOPHRENIA
     Dosage: 6 MG DAILY
     Route: 048
     Dates: start: 20100201
  10. METHYCOBAL [Concomitant]
     Dosage: 500 UG, UNK
     Route: 048
     Dates: start: 20100308, end: 20100922
  11. GLEEVEC [Interacting]
     Dosage: 200 MG, DAILY
     Route: 048
     Dates: start: 20100531, end: 20100627
  12. RISPERDAL [Interacting]
     Dosage: 6 MG, DAILY
     Route: 048
     Dates: start: 20100308, end: 20100922
  13. DEPAKENE [Concomitant]
     Dosage: 300 MG, UNK
     Route: 048
     Dates: start: 20100308, end: 20100922
  14. AKINETON [Concomitant]
     Dosage: 3 MG, UNK
     Route: 048
     Dates: start: 20100308, end: 20100922
  15. GLEEVEC [Interacting]
     Dosage: 200 MG, UNK
     Route: 048
     Dates: start: 20100305, end: 20100418
  16. GLEEVEC [Interacting]
     Dosage: 300 MG, DAILY
     Route: 048
     Dates: start: 20100628, end: 20100725
  17. LENDORMIN [Concomitant]
     Dosage: 0.25 MG, UNK
     Route: 048
     Dates: start: 20100308, end: 20100922

REACTIONS (7)
  - NEUROPATHY PERIPHERAL [None]
  - DRUG INTERACTION [None]
  - DECREASED APPETITE [None]
  - INTERSTITIAL LUNG DISEASE [None]
  - COUGH [None]
  - HYPOAESTHESIA [None]
  - NEOPLASM MALIGNANT [None]
